FAERS Safety Report 17393717 (Version 1)
Quarter: 2020Q1

REPORT INFORMATION
  Report Type: Spontaneous
  Country: DE (occurrence: DE)
  Receive Date: 20200209
  Receipt Date: 20200209
  Transmission Date: 20200409
  Serious: Yes (Other)
  Sender: FDA-Public Use
  Company Number: DE-BEH-2020112680

PATIENT
  Sex: Male

DRUGS (1)
  1. PRIVIGEN [Suspect]
     Active Substance: HUMAN IMMUNOGLOBULIN G
     Indication: SECONDARY IMMUNODEFICIENCY
     Route: 065

REACTIONS (4)
  - Hepatitis B reactivation [Unknown]
  - Transaminases increased [Unknown]
  - Suspected transmission of an infectious agent via product [Unknown]
  - Hepatitis B [Unknown]

NARRATIVE: CASE EVENT DATE: 2020
